FAERS Safety Report 7002476-2 (Version None)
Quarter: 2010Q3

REPORT INFORMATION
  Report Type: 
  Country: None (occurrence: None)
  Receive Date: 20100920
  Receipt Date: 20091105
  Transmission Date: 20110219
  Serious: Yes (Other)
  Sender: FDA-Public Use
  Company Number: US-ASTRAZENECA-2008UW27499

PATIENT
  Age: 20 Year
  Sex: Male
  Weight: 120.2 kg

DRUGS (10)
  1. SEROQUEL [Suspect]
     Indication: INSOMNIA
     Dosage: 25 MG TO 200 MG
     Route: 048
     Dates: start: 20000405, end: 20010101
  2. SEROQUEL [Suspect]
     Indication: MENTAL DISORDER
     Dosage: 25 MG TO 200 MG
     Route: 048
     Dates: start: 20000405, end: 20010101
  3. SEROQUEL [Suspect]
     Indication: SLEEP DISORDER
     Dosage: 25 MG TO 200 MG
     Route: 048
     Dates: start: 20000405, end: 20010101
  4. SEROQUEL [Suspect]
     Dosage: 50 MG TO 200 MG
     Route: 048
     Dates: start: 20040101, end: 20051207
  5. SEROQUEL [Suspect]
     Dosage: 50 MG TO 200 MG
     Route: 048
     Dates: start: 20040101, end: 20051207
  6. SEROQUEL [Suspect]
     Dosage: 50 MG TO 200 MG
     Route: 048
     Dates: start: 20040101, end: 20051207
  7. ABILIFY [Concomitant]
  8. GEODON [Concomitant]
  9. RISPERDAL [Concomitant]
  10. ZYPREXA [Concomitant]

REACTIONS (6)
  - ABDOMINAL PAIN [None]
  - BRONCHITIS [None]
  - EYE INJURY [None]
  - PANCREATITIS [None]
  - PYREXIA [None]
  - RESPIRATORY DISORDER [None]
